FAERS Safety Report 7546409-9 (Version None)
Quarter: 2011Q2

REPORT INFORMATION
  Report Type: 
  Country: None (occurrence: None)
  Receive Date: 20110607
  Receipt Date: 20110523
  Transmission Date: 20111010
  Serious: Yes (Disabling)
  Sender: FDA-Public Use
  Company Number: DE-1186465

PATIENT
  Sex: Female

DRUGS (1)
  1. ALOMIDE [Suspect]
     Dosage: OPHTHALMIC
     Route: 047

REACTIONS (3)
  - BLINDNESS TRANSIENT [None]
  - DISABILITY [None]
  - EYE PRURITUS [None]
